APPROVED DRUG PRODUCT: TRIPHASIL-28
Active Ingredient: ETHINYL ESTRADIOL; LEVONORGESTREL
Strength: 0.03MG,0.04MG,0.03MG;0.05MG,0.075MG,0.125MG **Federal Register determination that product was not discontinued or withdrawn for safety or effectiveness reasons**
Dosage Form/Route: TABLET;ORAL-28
Application: N019190 | Product #001
Applicant: WYETH PHARMACEUTICALS INC
Approved: Nov 1, 1984 | RLD: Yes | RS: No | Type: DISCN